FAERS Safety Report 6886097-8 (Version None)
Quarter: 2010Q3

REPORT INFORMATION
  Report Type: 
  Country: None (occurrence: None)
  Receive Date: 20100729
  Receipt Date: 20090107
  Transmission Date: 20110219
  Serious: Yes (Hospitalization, Other)
  Sender: FDA-Public Use
  Company Number: US-PFIZER INC-2008029958

PATIENT
  Age: 95 Year
  Sex: Female
  Weight: 45 kg

DRUGS (3)
  1. CELEBREX [Suspect]
     Indication: BACK PAIN
     Dates: start: 20080301
  2. ACETYLSALICYLIC ACID SRT [Concomitant]
  3. MOTRIN [Concomitant]

REACTIONS (3)
  - APLASTIC ANAEMIA [None]
  - DECREASED APPETITE [None]
  - RECTAL HAEMORRHAGE [None]
